FAERS Safety Report 8322997-X (Version None)
Quarter: 2012Q2

REPORT INFORMATION
  Report Type: 
  Country: None (occurrence: None)
  Receive Date: 20120430
  Receipt Date: 20120415
  Transmission Date: 20120825
  Serious: Yes (Hospitalization)
  Sender: FDA-Public Use
  Company Number: CA-PFIZER INC-2012102000

PATIENT
  Age: 78 Year
  Sex: Male
  Weight: 81.19 kg

DRUGS (1)
  1. NICORETTE [Suspect]
     Indication: SMOKING CESSATION THERAPY
     Dosage: INHALATION
     Dates: start: 20120402, end: 20120401

REACTIONS (1)
  - CHEST PAIN [None]
